FAERS Safety Report 5987546-X (Version None)
Quarter: 2008Q4

REPORT INFORMATION
  Report Type: 
  Country: None (occurrence: None)
  Receive Date: 20081209
  Receipt Date: 20081204
  Transmission Date: 20090506
  Serious: Yes (Death, Hospitalization)
  Sender: FDA-Public Use
  Company Number: PHHY2008JP30844

PATIENT
  Sex: Female

DRUGS (5)
  1. DIOVAN [Suspect]
     Indication: HYPERTENSION
     Dosage: 20 MG, QD
     Route: 048
     Dates: start: 20071204, end: 20081129
  2. FOSAMAX [Concomitant]
     Dosage: 5 MG, UNK
     Route: 048
  3. SENNOSIDE [Concomitant]
     Dosage: 24 MG, UNK
     Route: 048
  4. ALFACALCIDOL [Concomitant]
     Dosage: 0.5 MG, UNK
     Route: 048
  5. ALLORINE [Concomitant]
     Dosage: 100 MG, UNK
     Route: 048

REACTIONS (1)
  - CEREBRAL HAEMORRHAGE [None]
